FAERS Safety Report 25026800 (Version 1)
Quarter: 2025Q1

REPORT INFORMATION
  Report Type: Spontaneous
  Country: US (occurrence: US)
  Receive Date: 20250301
  Receipt Date: 20250301
  Transmission Date: 20250409
  Serious: No
  Sender: SANOFI AVENTIS
  Company Number: US-SA-2025SA055196

PATIENT
  Age: 54 Year
  Sex: Female

DRUGS (15)
  1. DUPIXENT [Suspect]
     Active Substance: DUPILUMAB
     Indication: Asthma
     Dosage: 150MG/ML, QOW
     Route: 058
     Dates: start: 20220419
  2. ATOMOXETINE [Concomitant]
     Active Substance: ATOMOXETINE
  3. CELECOXIB [Concomitant]
     Active Substance: CELECOXIB
  4. CICLOPIROX [Concomitant]
     Active Substance: CICLOPIROX
  5. COMBIPATCH [Concomitant]
     Active Substance: ESTRADIOL\NORETHINDRONE ACETATE
  6. EPINEPHRINE [Concomitant]
     Active Substance: EPINEPHRINE
  7. FAMOTIDINE [Concomitant]
     Active Substance: FAMOTIDINE
  8. LAMOTRIGINE [Concomitant]
     Active Substance: LAMOTRIGINE
  9. LATUDA [Concomitant]
     Active Substance: LURASIDONE HYDROCHLORIDE
  10. LEVOTHYROXINE SODIUM [Concomitant]
     Active Substance: LEVOTHYROXINE SODIUM
  11. METHOTREXATE [Concomitant]
     Active Substance: METHOTREXATE
  12. OMEPRAZOLE [Concomitant]
     Active Substance: OMEPRAZOLE
  13. PAROXETINE [Concomitant]
     Active Substance: PAROXETINE
  14. PROPRANOLOL [Concomitant]
     Active Substance: PROPRANOLOL HYDROCHLORIDE
  15. STRATTERA [Concomitant]
     Active Substance: ATOMOXETINE HYDROCHLORIDE

REACTIONS (3)
  - Condition aggravated [Not Recovered/Not Resolved]
  - Asthma [Not Recovered/Not Resolved]
  - Impaired quality of life [Not Recovered/Not Resolved]

NARRATIVE: CASE EVENT DATE: 20250101
